FAERS Safety Report 7743047-X (Version None)
Quarter: 2011Q3

REPORT INFORMATION
  Report Type: 
  Country: None (occurrence: None)
  Receive Date: 20110912
  Receipt Date: 20110906
  Transmission Date: 20111222
  Serious: Yes (Other)
  Sender: FDA-Public Use
  Company Number: DE-ROCHE-756310

PATIENT
  Age: 45 Year
  Sex: Male
  Weight: 122 kg

DRUGS (1)
  1. TOCILIZUMAB [Suspect]
     Indication: RHEUMATOID ARTHRITIS
     Route: 042
     Dates: start: 20101130

REACTIONS (2)
  - BLOOD PRESSURE ABNORMAL [None]
  - HYPERSENSITIVITY [None]
